FAERS Safety Report 18142690 (Version 2)
Quarter: 2022Q4

REPORT INFORMATION
  Report Type: Report from Study
  Country: US (occurrence: US)
  Receive Date: 20200812
  Receipt Date: 20221012
  Transmission Date: 20230112
  Serious: Yes (Hospitalization)
  Sender: FDA-Public Use
  Company Number: US-BAUSCH-BL-2020-016034

PATIENT
  Age: 82 Year
  Sex: Male

DRUGS (2)
  1. XIFAXAN [Suspect]
     Active Substance: RIFAXIMIN
     Indication: Hepatic encephalopathy
     Route: 048
     Dates: end: 2019
  2. XIFAXAN [Suspect]
     Active Substance: RIFAXIMIN
     Dosage: REDUCED DOSE
     Route: 048
     Dates: start: 2019

REACTIONS (5)
  - Hospitalisation [Unknown]
  - Feeling abnormal [Unknown]
  - Diarrhoea [Unknown]
  - Bedridden [Unknown]
  - Intentional product use issue [Unknown]

NARRATIVE: CASE EVENT DATE: 20190101
